FAERS Safety Report 24679149 (Version 1)
Quarter: 2024Q4

REPORT INFORMATION
  Report Type: Spontaneous
  Country: US (occurrence: US)
  Receive Date: 20241129
  Receipt Date: 20241129
  Transmission Date: 20250115
  Serious: Yes (Disabling, Other)
  Sender: TEVA
  Company Number: US-TEVA-VS-3268462

PATIENT

DRUGS (2)
  1. TORSEMIDE [Suspect]
     Active Substance: TORSEMIDE
     Indication: Product used for unknown indication
     Route: 065
  2. CARVEDILOL [Suspect]
     Active Substance: CARVEDILOL
     Indication: Product used for unknown indication
     Route: 065

REACTIONS (6)
  - Disorientation [Unknown]
  - Road traffic accident [Unknown]
  - Loss of consciousness [Unknown]
  - Confusional state [Unknown]
  - Toxicity to various agents [Unknown]
  - Product communication issue [Unknown]

NARRATIVE: CASE EVENT DATE: 20220901
